FAERS Safety Report 5647788-X (Version None)
Quarter: 2008Q1

REPORT INFORMATION
  Report Type: 
  Country: None (occurrence: None)
  Receive Date: 20080303
  Receipt Date: 20080220
  Transmission Date: 20080703
  Serious: Yes (Other)
  Sender: FDA-Public Use
  Company Number: GB-PFIZER INC-2008016822

PATIENT
  Age: 60 Year
  Sex: Female
  Weight: 67.1 kg

DRUGS (1)
  1. CHANTIX [Suspect]
     Indication: SMOKING CESSATION THERAPY
     Route: 048
     Dates: start: 20080117, end: 20080124

REACTIONS (6)
  - CHILLS [None]
  - DISTURBANCE IN ATTENTION [None]
  - DYSARTHRIA [None]
  - FEELING ABNORMAL [None]
  - FEELING COLD [None]
  - SPEECH DISORDER [None]
